FAERS Safety Report 17375182 (Version 1)
Quarter: 2020Q1

REPORT INFORMATION
  Report Type: Spontaneous
  Country: US (occurrence: US)
  Receive Date: 20200204
  Receipt Date: 20200204
  Transmission Date: 20200409
  Serious: Yes (Other)
  Sender: FDA-Public Use
  Company Number: None

PATIENT
  Age: 52 Year
  Sex: Female

DRUGS (1)
  1. XEOMIN [Suspect]
     Active Substance: INCOBOTULINUMTOXINA

REACTIONS (3)
  - Drug ineffective [None]
  - Product substitution issue [None]
  - Product measured potency issue [None]

NARRATIVE: CASE EVENT DATE: 20191101
